FAERS Safety Report 8446137-1 (Version None)
Quarter: 2012Q2

REPORT INFORMATION
  Report Type: 
  Country: None (occurrence: None)
  Receive Date: 20120618
  Receipt Date: 20120608
  Transmission Date: 20120825
  Serious: Yes (Hospitalization)
  Sender: FDA-Public Use
  Company Number: US-ABBOTT-12P-163-0944174-00

PATIENT
  Sex: Female
  Weight: 61.29 kg

DRUGS (3)
  1. HUMIRA [Suspect]
     Indication: CROHN'S DISEASE
     Dates: start: 20111201, end: 20120501
  2. PREDNISONE [Suspect]
     Indication: CROHN'S DISEASE
  3. HUMIRA [Suspect]
     Dates: start: 20110501

REACTIONS (7)
  - INAPPROPRIATE SCHEDULE OF DRUG ADMINISTRATION [None]
  - ABDOMINAL DISTENSION [None]
  - ORTHOPNOEA [None]
  - GENERALISED OEDEMA [None]
  - INTESTINAL OBSTRUCTION [None]
  - LOCAL SWELLING [None]
  - SWELLING FACE [None]
